FAERS Safety Report 6360829-X (Version None)
Quarter: 2009Q3

REPORT INFORMATION
  Report Type: 
  Country: None (occurrence: None)
  Receive Date: 20090918
  Receipt Date: 20090904
  Transmission Date: 20100115
  Serious: Yes (Other)
  Sender: FDA-Public Use
  Company Number: GB-ROCHE-649578

PATIENT

DRUGS (1)
  1. OSELTAMIVIR [Suspect]
     Dosage: WEIGHT BASED DOSE
     Route: 065

REACTIONS (13)
  - ABDOMINAL PAIN UPPER [None]
  - ABNORMAL BEHAVIOUR [None]
  - CONFUSIONAL STATE [None]
  - DIARRHOEA [None]
  - DISTURBANCE IN ATTENTION [None]
  - FEELING ABNORMAL [None]
  - INSOMNIA [None]
  - MENTAL DISORDER [None]
  - NAUSEA [None]
  - NIGHTMARE [None]
  - PYREXIA [None]
  - RASH [None]
  - VOMITING [None]
